FAERS Safety Report 8626883 (Version 4)
Quarter: 2012Q4

REPORT INFORMATION
  Report Type: 
  Country: JP (occurrence: JP)
  Receive Date: 20120608
  Receipt Date: 20121122
  Transmission Date: 20130627
  Serious: Yes (Hospitalization, Other)
  Sender: FDA-Public Use
  Company Number: JP-009507513-2012SP029619

PATIENT
  Age: 56 Year
  Sex: Male
  Weight: 70 kg

DRUGS (19)
  1. PEGINTRON [Suspect]
     Indication: CHRONIC HEPATITIS C
     Dosage: 1.5 Microgram per kilogram, qw
     Route: 058
     Dates: start: 20120113, end: 20120316
  2. PEGINTRON [Suspect]
     Dosage: 1.2 Microgram per kilogram, qw
     Route: 058
     Dates: start: 20120323, end: 20120504
  3. REBETOL [Suspect]
     Indication: CHRONIC HEPATITIS C
     Dosage: 800 mg, qd,  cumulative dose: 51200 mg
     Route: 048
     Dates: start: 20120113, end: 20120419
  4. REBETOL [Suspect]
     Dosage: 400 mg, qd, cumulative dose: 51200 mg
     Route: 048
     Dates: start: 20120420, end: 20120511
  5. TELAVIC [Suspect]
     Indication: CHRONIC HEPATITIS C
     Dosage: 2250 mg, qd, cumulative dose: 87750 mg
     Route: 048
     Dates: start: 20120207, end: 20120430
  6. BRANUTE [Concomitant]
     Indication: HYPOALBUMINAEMIA
     Dosage: 14.19 g, qd, Formulation:POR
     Route: 048
     Dates: end: 20120328
  7. BRANUTE [Concomitant]
     Indication: CHRONIC HEPATITIS C
     Dosage: 14.19 g, qd, Formulation: POR
     Route: 048
     Dates: start: 20120512
  8. POSTERISAN [Concomitant]
     Indication: CONSTIPATION
     Dosage: UNK
     Route: 061
     Dates: start: 20120323
  9. ALLEGRA [Concomitant]
     Indication: PROPHYLAXIS
     Dosage: 120 mg, qd, Formulation: POR
     Route: 048
     Dates: start: 20120413
  10. ALLEGRA [Concomitant]
     Dosage: 120 mg, Once
     Route: 048
  11. HIRUDOID [Concomitant]
     Indication: PROPHYLAXIS
     Dosage: UNK UNK, prn
     Route: 061
     Dates: start: 20120420
  12. SELBEX [Concomitant]
     Indication: PROPHYLAXIS
     Dosage: UNSPECIFIED FORMULATION : POR
     Route: 048
     Dates: start: 20120207
  13. LOXOPROFEN [Concomitant]
     Indication: PROPHYLAXIS
     Dosage: FORMULATION UNSPECIFIED: POR
     Route: 048
     Dates: start: 20120207
  14. HEPARINOID [Concomitant]
     Indication: PROPHYLAXIS
     Dosage: PRN; DAILY DOSE UNKNOWN
     Route: 061
  15. ADOFEED [Concomitant]
     Indication: PROPHYLAXIS
     Dosage: PRN; DAILY DOSE UNKNOWN; FORMULATION: TAP
     Route: 061
  16. ADOFEED [Concomitant]
     Dosage: as needed
     Route: 061
  17. LIVOSTIN [Concomitant]
     Indication: RHINITIS
     Dosage: FORMULATION UNSPECIFIED: NDR; DOSE: DAILY DOSE UNKNOWN, PRN.
     Route: 045
  18. LIVOSTIN [Concomitant]
     Dosage: as needed
     Route: 045
  19. POSTERISAN [Concomitant]
     Indication: CONSTIPATION
     Dosage: as needed
     Route: 061

REACTIONS (14)
  - Erythema [Recovering/Resolving]
  - Hepatic function abnormal [Recovering/Resolving]
  - Haemoglobin decreased [Recovered/Resolved]
  - Platelet count decreased [None]
  - Oedema [None]
  - Pruritus [None]
  - Skin exfoliation [None]
  - Malaise [None]
  - Ascites [None]
  - Jaundice [None]
  - Decreased appetite [None]
  - Dry skin [None]
  - Weight increased [None]
  - Blood albumin decreased [None]
